FAERS Safety Report 22024456 (Version 2)
Quarter: 2023Q1

REPORT INFORMATION
  Report Type: Spontaneous
  Country: DE (occurrence: DE)
  Receive Date: 20230223
  Receipt Date: 20230303
  Transmission Date: 20230418
  Serious: Yes (Other)
  Sender: FDA-Public Use
  Company Number: DE-CIPLA (EU) LIMITED-2023DE00756

PATIENT
  Age: 75 Year
  Sex: Female

DRUGS (5)
  1. IMATINIB [Suspect]
     Active Substance: IMATINIB
     Indication: Gastrointestinal stromal tumour
     Dosage: UNK
     Route: 065
  2. SUNITINIB [Suspect]
     Active Substance: SUNITINIB
     Indication: Gastrointestinal stromal tumour
     Dosage: STARTED RECEIVING FOURTH-LINE TREATMENT
     Route: 065
  3. MASITINIB [Concomitant]
     Active Substance: MASITINIB
     Indication: Gastrointestinal stromal tumour
     Dosage: STARTED RECEIVING THIRD-LINE TREATMENT
     Route: 065
  4. NILOTINIB [Concomitant]
     Active Substance: NILOTINIB
     Indication: Gastrointestinal stromal tumour
     Dosage: UNK
     Route: 065
     Dates: start: 201709
  5. REGORAFENIB [Concomitant]
     Active Substance: REGORAFENIB
     Indication: Gastrointestinal stromal tumour
     Dosage: UNK
     Route: 065

REACTIONS (4)
  - Drug resistance [Unknown]
  - Gastrointestinal stromal tumour [Recovered/Resolved]
  - Neoplasm progression [Recovered/Resolved]
  - Drug ineffective [Unknown]
